FAERS Safety Report 11317805 (Version 1)
Quarter: 2015Q3

REPORT INFORMATION
  Report Type: Report from Study
  Country: US (occurrence: US)
  Receive Date: 20150728
  Receipt Date: 20150728
  Transmission Date: 20151125
  Serious: Yes (Other)
  Sender: FDA-Public Use
  Company Number: PHEH2015US014112

PATIENT
  Sex: Female

DRUGS (9)
  1. CAL-MAG CITRATE [Concomitant]
     Indication: PRODUCT USED FOR UNKNOWN INDICATION
     Route: 065
  2. COQ10 [Concomitant]
     Active Substance: UBIDECARENONE
     Indication: PRODUCT USED FOR UNKNOWN INDICATION
     Dosage: UNK
     Route: 065
  3. PHOSPHATIDYL CHOLINE [Concomitant]
     Active Substance: LECITHIN
     Indication: PRODUCT USED FOR UNKNOWN INDICATION
     Dosage: UNK
     Route: 065
  4. AFINITOR [Suspect]
     Active Substance: EVEROLIMUS
     Indication: PRODUCT USED FOR UNKNOWN INDICATION
     Dosage: 10 MG, UNK
     Route: 065
  5. LOSARTAN. [Suspect]
     Active Substance: LOSARTAN
     Indication: PRODUCT USED FOR UNKNOWN INDICATION
     Dosage: UNK
     Route: 065
  6. EXEMESTANE. [Concomitant]
     Active Substance: EXEMESTANE
     Indication: PRODUCT USED FOR UNKNOWN INDICATION
     Dosage: UNK
     Route: 065
  7. ARABINOGALACTAN [Concomitant]
     Indication: PRODUCT USED FOR UNKNOWN INDICATION
     Dosage: UNK
     Route: 065
  8. MAGNESIUM CITRATE. [Concomitant]
     Active Substance: MAGNESIUM CITRATE
     Indication: PRODUCT USED FOR UNKNOWN INDICATION
     Route: 065
  9. MULTI VITAMIN [Concomitant]
     Active Substance: VITAMINS
     Indication: PRODUCT USED FOR UNKNOWN INDICATION
     Dosage: UNK
     Route: 065

REACTIONS (22)
  - Oral pain [Recovered/Resolved]
  - Swollen tongue [Recovered/Resolved]
  - Angioedema [Unknown]
  - Urticaria [Unknown]
  - Generalised oedema [Recovered/Resolved]
  - Generalised oedema [Unknown]
  - Feeding disorder [Recovered/Resolved]
  - Pharyngeal oedema [Unknown]
  - Pruritus [Recovered/Resolved]
  - Stomatitis [Recovered/Resolved]
  - Oral pain [Unknown]
  - Eye swelling [Recovered/Resolved]
  - Pruritus [Unknown]
  - Angioedema [Recovered/Resolved]
  - Lip swelling [Unknown]
  - Eye swelling [Unknown]
  - Swollen tongue [Unknown]
  - Pharyngeal oedema [Recovered/Resolved]
  - Lip swelling [Recovered/Resolved]
  - Feeding disorder [Unknown]
  - Stomatitis [Unknown]
  - Urticaria [Recovered/Resolved]
